FAERS Safety Report 15778899 (Version 2)
Quarter: 2019Q1

REPORT INFORMATION
  Report Type: Spontaneous
  Country: US (occurrence: US)
  Receive Date: 20190101
  Receipt Date: 20190318
  Transmission Date: 20190417
  Serious: No
  Sender: FDA-Public Use
  Company Number: US-AMGEN INC.-USASP2018186249

PATIENT
  Age: 67 Year
  Sex: Female

DRUGS (3)
  1. AIMOVIG [Suspect]
     Active Substance: ERENUMAB-AOOE
     Indication: MIGRAINE PROPHYLAXIS
     Dosage: 70 MILLIGRAM
     Route: 065
     Dates: start: 20181220
  2. BOTOX [Concomitant]
     Active Substance: ONABOTULINUMTOXINA
  3. EXCEDRIN IB [Concomitant]
     Indication: MIGRAINE

REACTIONS (3)
  - Drug effect incomplete [Unknown]
  - Injection site pain [Recovered/Resolved]
  - Photosensitivity reaction [Unknown]

NARRATIVE: CASE EVENT DATE: 201812
